FAERS Safety Report 25465818 (Version 2)
Quarter: 2025Q3

REPORT INFORMATION
  Report Type: Spontaneous
  Country: GB (occurrence: GB)
  Receive Date: 20250623
  Receipt Date: 20250711
  Transmission Date: 20251021
  Serious: Yes (Hospitalization, Disabling, Other)
  Sender: CSL BEHRING
  Company Number: None

PATIENT
  Age: 54 Year
  Sex: Male
  Weight: 86 kg

DRUGS (61)
  1. PRIVIGEN [Suspect]
     Active Substance: HUMAN IMMUNOGLOBULIN G
     Indication: Product used for unknown indication
     Route: 042
     Dates: start: 20231124, end: 20231126
  2. PRIVIGEN [Suspect]
     Active Substance: HUMAN IMMUNOGLOBULIN G
     Route: 065
     Dates: start: 20240115, end: 20240117
  3. COMIRNATY (TOZINAMERAN) [Suspect]
     Active Substance: TOZINAMERAN
     Indication: Adverse drug reaction
     Route: 065
     Dates: start: 20211215
  4. AMITRIPTYLINE [Suspect]
     Active Substance: AMITRIPTYLINE
     Indication: Neuralgia
     Dosage: 10 MG, QD AT NIGHT
     Route: 065
     Dates: start: 20220115
  5. PREGABALIN [Suspect]
     Active Substance: PREGABALIN
     Indication: Neuralgia
     Dosage: 50 MG, BID (EVERY 12 HOURS)
     Route: 065
     Dates: start: 20220803
  6. PREGABALIN [Suspect]
     Active Substance: PREGABALIN
     Dosage: 150 MG, TID (EVERY 8 HOURS)
     Route: 065
  7. PREGABALIN [Suspect]
     Active Substance: PREGABALIN
     Dosage: 250 MG, BID (EVERY 12 HOURS)
     Route: 065
     Dates: start: 20221119, end: 20221126
  8. PREGABALIN [Suspect]
     Active Substance: PREGABALIN
     Dosage: 100 MG, BID (EVERY 12 HOURS)
     Route: 065
  9. PREGABALIN [Suspect]
     Active Substance: PREGABALIN
     Dosage: 300 MG, BID (EVERY 12 HOURS)
     Route: 065
     Dates: start: 20221127
  10. PREGABALIN [Suspect]
     Active Substance: PREGABALIN
     Route: 065
     Dates: start: 20221111, end: 20221118
  11. VYEPTI [Suspect]
     Active Substance: EPTINEZUMAB-JJMR
     Indication: Product used for unknown indication
     Route: 065
     Dates: start: 20230814, end: 20230814
  12. PREDNISOLONE [Suspect]
     Active Substance: PREDNISOLONE
     Dosage: 8 DF, QD
     Route: 048
     Dates: start: 20230911, end: 20230918
  13. PREDNISOLONE [Suspect]
     Active Substance: PREDNISOLONE
     Dosage: 40 MG, QD
     Route: 065
     Dates: start: 20220328, end: 20220403
  14. PREDNISOLONE [Suspect]
     Active Substance: PREDNISOLONE
     Route: 065
  15. OXCARBAZEPINE [Suspect]
     Active Substance: OXCARBAZEPINE
     Indication: Product used for unknown indication
     Dosage: 1200 MG, QD
     Route: 065
     Dates: start: 20221013, end: 20221207
  16. OXYCODONE HYDROCHLORIDE [Suspect]
     Active Substance: OXYCODONE HYDROCHLORIDE
     Indication: Product used for unknown indication
     Dosage: 10 MG,  QID EVERY 6 HOURS
     Route: 048
     Dates: start: 20220803, end: 20230727
  17. CARBAMAZEPINE [Concomitant]
     Active Substance: CARBAMAZEPINE
     Indication: Neuralgia
     Dosage: 200 MG, BID (EVERY 12 HOURS)
     Route: 065
     Dates: start: 20220420, end: 20220503
  18. CARBAMAZEPINE [Concomitant]
     Active Substance: CARBAMAZEPINE
     Dosage: 400 MG, BID  (EVERY 12 HOURS)
     Route: 065
     Dates: start: 20220404
  19. BACLOFEN [Concomitant]
     Active Substance: BACLOFEN
     Indication: Neuralgia
     Dosage: 10 MG, TID (EVERY 8 HOUR)
     Route: 065
     Dates: end: 20220803
  20. BACLOFEN [Concomitant]
     Active Substance: BACLOFEN
     Dosage: 20 MG, TID  (EVERY 8 HOUR)
  21. PHENYTOIN [Concomitant]
     Active Substance: PHENYTOIN
     Dosage: 100 MG, TID
     Route: 065
     Dates: start: 20220526
  22. PHENYTOIN [Concomitant]
     Active Substance: PHENYTOIN
     Route: 065
  23. ACETAMINOPHEN\TRAMADOL [Concomitant]
     Active Substance: ACETAMINOPHEN\TRAMADOL
     Dosage: 362.5 MG QID, EVERY 6 HOURS
     Route: 065
     Dates: start: 20220413
  24. OMEPRAZOLE [Concomitant]
     Active Substance: OMEPRAZOLE
     Route: 065
     Dates: start: 20230911
  25. LAMOTRIGINE [Concomitant]
     Active Substance: LAMOTRIGINE
     Indication: Pain
     Dosage: 25 MG, BID (EVERY 12 HOURS)
     Route: 065
     Dates: start: 20221217, end: 20221224
  26. LAMOTRIGINE [Concomitant]
     Active Substance: LAMOTRIGINE
     Dosage: 50 MG  (EVERY 12 HOURS)
     Route: 065
     Dates: start: 20221231, end: 20230107
  27. LAMOTRIGINE [Concomitant]
     Active Substance: LAMOTRIGINE
     Dosage: 75 MG, BID  (EVERY 12 HOURS)
     Route: 065
     Dates: start: 20230114, end: 20230121
  28. LAMOTRIGINE [Concomitant]
     Active Substance: LAMOTRIGINE
     Dosage: 100 MG, BID  (EVERY 12 HOURS)
     Route: 065
     Dates: start: 20230128, end: 20230203
  29. LAMOTRIGINE [Concomitant]
     Active Substance: LAMOTRIGINE
     Route: 065
     Dates: start: 20230204, end: 20230210
  30. LAMOTRIGINE [Concomitant]
     Active Substance: LAMOTRIGINE
     Dosage: 175 MG, BID  (EVERY 12 HOURS)
     Route: 065
     Dates: start: 20230223, end: 20230301
  31. LAMOTRIGINE [Concomitant]
     Active Substance: LAMOTRIGINE
     Dosage: 200 MG, BID  (EVERY 12 HOURS)
     Route: 065
     Dates: start: 20230302
  32. LAMOTRIGINE [Concomitant]
     Active Substance: LAMOTRIGINE
     Dosage: 150 MG, BID  (EVERY 12 HOURS)
     Route: 065
     Dates: start: 20230211, end: 20230217
  33. BUPRENORPHINE [Concomitant]
     Active Substance: BUPRENORPHINE
     Dosage: 5 MG, BIW
     Route: 062
  34. NAPROXEN [Concomitant]
     Active Substance: NAPROXEN
     Route: 065
  35. ONDANSETRON [Concomitant]
     Active Substance: ONDANSETRON
     Indication: Nausea
     Dosage: 4 MG, TID THREE TIMES A DAY AS NECESSARY
     Route: 065
  36. HYPROMELLOSES [Concomitant]
     Active Substance: HYPROMELLOSES
     Dosage: OCC LACRI-LUBE OINTMENT AT NIGHT, G IKERVIS EYE DROPS ONCE A DAY - ALL LONG TERM.
     Route: 031
  37. LACOSAMIDE [Concomitant]
     Active Substance: LACOSAMIDE
     Route: 065
     Dates: start: 20231023, end: 20231101
  38. LACOSAMIDE [Concomitant]
     Active Substance: LACOSAMIDE
     Route: 065
     Dates: start: 20231102, end: 20241111
  39. LACOSAMIDE [Concomitant]
     Active Substance: LACOSAMIDE
     Route: 065
     Dates: start: 20231112, end: 20231121
  40. LACOSAMIDE [Concomitant]
     Active Substance: LACOSAMIDE
     Route: 065
     Dates: start: 20231122, end: 20231201
  41. LACOSAMIDE [Concomitant]
     Active Substance: LACOSAMIDE
     Route: 065
     Dates: start: 20231202, end: 20231211
  42. DIAZEPAM [Concomitant]
     Active Substance: DIAZEPAM
     Route: 065
  43. FERROUS FUMARATE [Concomitant]
     Active Substance: FERROUS FUMARATE
     Dosage: 305 MG, QD
     Route: 048
  44. DULOXETINE [Concomitant]
     Active Substance: DULOXETINE
     Route: 065
     Dates: start: 20230911
  45. ACYCLOVIR [Concomitant]
     Active Substance: ACYCLOVIR
     Route: 065
     Dates: start: 20220328, end: 20220403
  46. UNSPECIFIED INGREDIENT [Concomitant]
     Active Substance: UNSPECIFIED INGREDIENT
     Route: 065
     Dates: start: 20220509
  47. UNSPECIFIED INGREDIENT [Concomitant]
     Active Substance: UNSPECIFIED INGREDIENT
     Route: 065
     Dates: start: 20230408, end: 20230510
  48. LIDOCAINE [Concomitant]
     Active Substance: LIDOCAINE
     Route: 065
     Dates: start: 20230316, end: 20230316
  49. LIDOCAINE [Concomitant]
     Active Substance: LIDOCAINE
     Route: 062
     Dates: start: 20230428
  50. MAGNESIUM [Concomitant]
     Active Substance: MAGNESIUM
     Route: 065
     Dates: start: 20230316, end: 20230316
  51. ZOPICLONE [Concomitant]
     Active Substance: ZOPICLONE
     Indication: Insomnia
     Route: 065
  52. Co codamol almus [Concomitant]
     Dates: start: 20230911
  53. Co codamol almus [Concomitant]
     Dates: start: 20220217
  54. METHYLCOBALAMIN [Concomitant]
     Active Substance: METHYLCOBALAMIN
     Dosage: 500 ?G, QD
     Route: 060
  55. MIRTAZAPINE [Concomitant]
     Active Substance: MIRTAZAPINE
     Indication: Depression
     Dosage: 30 MG, QD AT NIGHT
     Route: 048
     Dates: start: 20230412
  56. NALTREXONE [Concomitant]
     Active Substance: NALTREXONE
     Dosage: 5 MG, QD
     Route: 065
  57. DULOXETINE [Concomitant]
     Active Substance: DULOXETINE
     Route: 065
  58. BOTOX [Concomitant]
     Active Substance: ONABOTULINUMTOXINA
     Route: 065
     Dates: start: 20230404, end: 20230517
  59. GABAPENTIN [Concomitant]
     Active Substance: GABAPENTIN
     Dosage: 900 MG, TID
     Route: 065
     Dates: start: 20220413
  60. GABAPENTIN [Concomitant]
     Active Substance: GABAPENTIN
     Dosage: 600 MG, TID
     Route: 065
     Dates: start: 20220328, end: 20220412
  61. GABAPENTIN [Concomitant]
     Active Substance: GABAPENTIN
     Dosage: 300 MG, TID
     Route: 065
     Dates: start: 20220217, end: 20220227

REACTIONS (9)
  - Feeling of despair [Not Recovered/Not Resolved]
  - Tinnitus [Not Recovered/Not Resolved]
  - Spinal pain [Not Recovered/Not Resolved]
  - Blindness [Not Recovered/Not Resolved]
  - Headache [Not Recovered/Not Resolved]
  - Gait disturbance [Not Recovered/Not Resolved]
  - Pain in extremity [Not Recovered/Not Resolved]
  - Influenza like illness [Recovered/Resolved]
  - Mobility decreased [Unknown]

NARRATIVE: CASE EVENT DATE: 20231124
